FAERS Safety Report 12364135 (Version 1)
Quarter: 2016Q2

REPORT INFORMATION
  Report Type: Report from Study
  Country: GB (occurrence: GB)
  Receive Date: 20160512
  Receipt Date: 20160512
  Transmission Date: 20160815
  Serious: Yes (Other)
  Sender: FDA-Public Use
  Company Number: GB-TEVA-658608ISR

PATIENT
  Age: 7 Decade

DRUGS (1)
  1. QUININE [Suspect]
     Active Substance: QUININE
     Indication: MUSCLE SPASMS
     Route: 065

REACTIONS (2)
  - Retinopathy [Unknown]
  - Retinal degeneration [Unknown]
